FAERS Safety Report 24122906 (Version 1)
Quarter: 2024Q3

REPORT INFORMATION
  Report Type: Spontaneous
  Country: FR (occurrence: FR)
  Receive Date: 20240723
  Receipt Date: 20240723
  Transmission Date: 20241016
  Serious: No
  Sender: ALKEM
  Company Number: FR-ALKEM LABORATORIES LIMITED-FR-ALKEM-2024-09957

PATIENT
  Sex: Female

DRUGS (3)
  1. DRONABINOL [Suspect]
     Active Substance: DRONABINOL
     Indication: Neuralgia
     Dosage: 15 MILLIGRAM, QD (6 CAPSULES IN TWO INTAKES (3-0-3))
     Route: 048
     Dates: start: 20221214
  2. DRONABINOL [Suspect]
     Active Substance: DRONABINOL
     Dosage: 7.5 MILLIGRAM, QD (CAPSULE, SOFT)
     Route: 065
     Dates: end: 20231204
  3. DRONABINOL [Suspect]
     Active Substance: DRONABINOL
     Dosage: 15 MILLIGRAM (3-0-3) (SOFT CAPSULE)
     Route: 065
     Dates: end: 20231214

REACTIONS (2)
  - Food craving [Recovered/Resolved]
  - Therapeutic response decreased [Unknown]

NARRATIVE: CASE EVENT DATE: 20221201
